FAERS Safety Report 8197024-8 (Version None)
Quarter: 2012Q1

REPORT INFORMATION
  Report Type: 
  Country: None (occurrence: None)
  Receive Date: 20120309
  Receipt Date: 20120228
  Transmission Date: 20120608
  Serious: Yes (Hospitalization, Other)
  Sender: FDA-Public Use
  Company Number: CA-ELI_LILLY_AND_COMPANY-CA201202008558

PATIENT
  Age: 47 Year
  Sex: Male

DRUGS (18)
  1. METFORMIN HCL [Concomitant]
  2. DAPSONE [Concomitant]
  3. INNOHEP [Concomitant]
  4. LOVENOX [Concomitant]
  5. PREDNISONE [Concomitant]
  6. CORTISONE ACETATE [Concomitant]
  7. DENORAL [Concomitant]
  8. DILAUDID [Concomitant]
  9. VITAMIN D [Concomitant]
  10. FORTEO [Suspect]
     Indication: OSTEOPOROSIS
     Dosage: 20 UG, QD
     Route: 058
     Dates: start: 20111215
  11. AMITRIPTYLINE HCL [Concomitant]
  12. CALCIUM [Concomitant]
  13. ESOMEPRAZOLE SODIUM [Concomitant]
  14. ZOPICLONE [Concomitant]
  15. INDOCENT [Concomitant]
  16. CITALOPRAM HYDROBROMIDE [Concomitant]
  17. IRON [Concomitant]
  18. TEMAZEPAM [Concomitant]

REACTIONS (2)
  - PULMONARY EMBOLISM [None]
  - PNEUMONIA [None]
